FAERS Safety Report 5947364-5 (Version None)
Quarter: 2008Q4

REPORT INFORMATION
  Report Type: 
  Country: None (occurrence: None)
  Receive Date: 20081106
  Receipt Date: 20081022
  Transmission Date: 20090506
  Serious: Yes (Hospitalization)
  Sender: FDA-Public Use
  Company Number: GXKR2008US10092

PATIENT
  Age: 60 Year
  Sex: Male

DRUGS (3)
  1. ISONIAZID [Suspect]
     Indication: TUBERCULIN TEST POSITIVE
     Dosage: 300 MG/DAY,
  2. LISINOPRIL [Concomitant]
  3. INSULIN (INSULIN) [Concomitant]

REACTIONS (1)
  - PANCREATITIS [None]
